FAERS Safety Report 8376764-1 (Version None)
Quarter: 2012Q2

REPORT INFORMATION
  Report Type: 
  Country: None (occurrence: None)
  Receive Date: 20120522
  Receipt Date: 20120209
  Transmission Date: 20120825
  Serious: No
  Sender: FDA-Public Use
  Company Number: US-BRISTOL-MYERS SQUIBB COMPANY-16391393

PATIENT
  Age: 72 Year
  Sex: Female

DRUGS (2)
  1. ONGLYZA [Suspect]
  2. PIOGLITAZONE HYDROCHLORIDE AND METFORMIN HYDROCHLORIDE [Suspect]
     Dosage: 1 DOSAGE FORM= METFORMIN 850+ PIOGLITAZONE 15

REACTIONS (1)
  - OEDEMA PERIPHERAL [None]
